FAERS Safety Report 14948576 (Version 4)
Quarter: 2018Q3

REPORT INFORMATION
  Report Type: Report from Study
  Country: IT (occurrence: IT)
  Receive Date: 20180529
  Receipt Date: 20180814
  Transmission Date: 20181010
  Serious: Yes (Hospitalization)
  Sender: FDA-Public Use
  Company Number: IT-PFIZER INC-2018213939

PATIENT
  Age: 17 Year
  Sex: Female

DRUGS (3)
  1. ORUDIS [Suspect]
     Active Substance: KETOPROFEN
     Indication: DRUG ABUSE
     Dosage: UNK
     Route: 048
     Dates: start: 20180207, end: 20180207
  2. LYRICA [Suspect]
     Active Substance: PREGABALIN
     Dosage: UNK
     Route: 048
     Dates: start: 20180207, end: 20180207
  3. GLUCOBAY [Suspect]
     Active Substance: ACARBOSE
     Dosage: UNK
     Route: 048
     Dates: start: 20180207, end: 20180207

REACTIONS (5)
  - Overdose [Recovering/Resolving]
  - Intentional self-injury [Recovering/Resolving]
  - Drug abuse [Recovering/Resolving]
  - Hyperuricaemia [Recovering/Resolving]
  - Suicide attempt [Recovering/Resolving]

NARRATIVE: CASE EVENT DATE: 20180207
